FAERS Safety Report 8102826-X (Version None)
Quarter: 2012Q1

REPORT INFORMATION
  Report Type: 
  Country: None (occurrence: None)
  Receive Date: 20120127
  Receipt Date: 20120117
  Transmission Date: 20120608
  Serious: Yes (Congenital Anomaly)
  Sender: FDA-Public Use
  Company Number: 7107025

PATIENT
  Sex: Male

DRUGS (2)
  1. LEVOTHYROXINE SODIUM [Suspect]
     Indication: MATERNAL DRUGS AFFECTING FOETUS
     Dosage: PRODUCT TAKEN BY MOTHER
  2. DIETHYLSTILBESTROL [Suspect]

REACTIONS (7)
  - UMBILICAL CORD AROUND NECK [None]
  - MACROSOMIA [None]
  - COARCTATION OF THE AORTA [None]
  - CONGENITAL PULMONARY HYPERTENSION [None]
  - MATERNAL DRUGS AFFECTING FOETUS [None]
  - CAESAREAN SECTION [None]
  - PATENT DUCTUS ARTERIOSUS [None]
